FAERS Safety Report 6360784-2 (Version None)
Quarter: 2009Q3

REPORT INFORMATION
  Report Type: 
  Country: None (occurrence: None)
  Receive Date: 20090918
  Receipt Date: 20090908
  Transmission Date: 20100115
  Serious: Yes (Death, Hospitalization)
  Sender: FDA-Public Use
  Company Number: US-JNJFOC-20090903015

PATIENT
  Age: 56 Year

DRUGS (2)
  1. INFLIXIMAB [Suspect]
     Indication: PSORIASIS
     Dosage: TREATMENT DURATION 3 WEEKS
     Route: 042
  2. PREDNISOLONE [Concomitant]

REACTIONS (2)
  - PNEUMONIA LEGIONELLA [None]
  - SEPTIC SHOCK [None]
